FAERS Safety Report 16669456 (Version 1)
Quarter: 2019Q3

REPORT INFORMATION
  Report Type: Spontaneous
  Country: VN (occurrence: VN)
  Receive Date: 20190805
  Receipt Date: 20190805
  Transmission Date: 20191004
  Serious: Yes (Death)
  Sender: FDA-Public Use
  Company Number: VN-PFIZER INC-2019333626

PATIENT
  Age: 59 Year

DRUGS (2)
  1. SOLU-MEDROL [Suspect]
     Active Substance: METHYLPREDNISOLONE SODIUM SUCCINATE
     Dosage: 125 MG, INJECTED
     Dates: start: 20190728
  2. CEFDINIR. [Concomitant]
     Active Substance: CEFDINIR
     Dosage: 300 MG, 1 TABLET
     Dates: start: 20190728

REACTIONS (5)
  - Skin ulcer [Fatal]
  - Peptic ulcer [Fatal]
  - Myocardial infarction [Fatal]
  - Anaphylactic shock [Fatal]
  - Laryngitis [Fatal]

NARRATIVE: CASE EVENT DATE: 20190728
